FAERS Safety Report 7333712-0 (Version None)
Quarter: 2011Q1

REPORT INFORMATION
  Report Type: 
  Country: None (occurrence: None)
  Receive Date: 20110306
  Receipt Date: 20110211
  Transmission Date: 20110831
  Serious: No
  Sender: FDA-Public Use
  Company Number: US-BAYER-2011-014960

PATIENT
  Sex: Male
  Weight: 100 kg

DRUGS (1)
  1. ALEVE (CAPLET) [Suspect]
     Indication: PAIN
     Dosage: DAILY DOSE 1 DF
     Route: 048
     Dates: start: 20100101

REACTIONS (3)
  - LIP SWELLING [None]
  - PARAESTHESIA ORAL [None]
  - EYE SWELLING [None]
